FAERS Safety Report 8595902 (Version 3)
Quarter: 2014Q1

REPORT INFORMATION
  Report Type: Spontaneous
  Country: US (occurrence: US)
  Receive Date: 20120605
  Receipt Date: 20140116
  Transmission Date: 20141002
  Serious: No
  Sender: FDA-Public Use
  Company Number: US-ASTRAZENECA-2012SE35961

PATIENT
  Age: 42 Year
  Sex: Female
  Weight: 70.3 kg

DRUGS (9)
  1. NEXIUM [Suspect]
     Indication: GASTROOESOPHAGEAL REFLUX DISEASE
     Route: 048
     Dates: start: 2005, end: 20110202
  2. NEXIUM [Suspect]
     Indication: GASTROOESOPHAGEAL REFLUX DISEASE
     Route: 048
     Dates: start: 200507
  3. NEXIUM [Suspect]
     Indication: GASTROOESOPHAGEAL REFLUX DISEASE
     Route: 048
     Dates: start: 20070313
  4. LORTAB [Concomitant]
     Dosage: 7.5 MG EVERY 8-10 HRS PRN
     Route: 048
     Dates: start: 200507
  5. SKELAXIN [Concomitant]
     Dosage: 800 MG TWICE A DAY AND PRN
     Route: 048
     Dates: start: 200507
  6. ROLAIDS [Concomitant]
     Route: 048
     Dates: start: 20050715
  7. HYDROCODONE [Concomitant]
     Route: 048
     Dates: start: 20050715
  8. ALPRAZOLAM [Concomitant]
  9. PRAVASTATIN [Concomitant]

REACTIONS (7)
  - Osteoporosis [Unknown]
  - Bone disorder [Unknown]
  - Multiple fractures [Unknown]
  - Osteogenesis imperfecta [Unknown]
  - Exostosis [Unknown]
  - Anxiety [Unknown]
  - Panic attack [Unknown]
